FAERS Safety Report 7825520-9 (Version None)
Quarter: 2011Q4

REPORT INFORMATION
  Report Type: 
  Country: None (occurrence: None)
  Receive Date: 20111019
  Receipt Date: 20111006
  Transmission Date: 20120403
  Serious: Yes (Hospitalization, Disabling)
  Sender: FDA-Public Use
  Company Number: US-BAYER-2010-009288

PATIENT
  Age: 30 Year
  Sex: Female
  Weight: 113 kg

DRUGS (13)
  1. ALDACTONE [Concomitant]
     Dosage: 100MG/1 TABLET IN MORNING
     Route: 048
  2. GLUCOPHAGE [Concomitant]
     Dosage: 500 MG/ 2 TABLETS DAILY
     Route: 048
  3. QUETIAPINE [Concomitant]
     Dosage: 200MG/TAKE 2 TABLETS IN AM, 4 TABLETS IN PM
     Route: 048
  4. ZYPREXA [Concomitant]
     Dosage: 10 MG/3 AND ONE-HALF TABLETS DAILY
     Route: 048
  5. FIORINAL [Concomitant]
     Dosage: 325-40-50MG/ 1-2 TABLETS EVERY 4 HOURS AS NEEDED
     Route: 048
  6. LAMOTRIGINE [Concomitant]
     Dosage: 200 MG/ ONE AND ONE-HALF TABLETS DAILY
     Route: 048
  7. LITHIUM CARBONATE [Concomitant]
     Dosage: 300 MG/ 2- 3 CAPSULES AT NIGHT
     Route: 048
  8. ABILIFY [Concomitant]
     Dosage: 15MG /ONE-HALF TO ONE TABLET DAILY
     Route: 048
  9. YAZ [Suspect]
     Indication: ACNE
     Dosage: UNK
     Dates: start: 20070101, end: 20090412
  10. WELLBUTRIN XL [Concomitant]
     Dosage: 150 MG/3 TABLETS DAILY
     Route: 048
  11. CELEXA [Concomitant]
     Dosage: 20 MG, QD
     Route: 048
  12. PRILOSEC [Concomitant]
     Dosage: 20 MG/ 1 CAPSUE DAILY
     Route: 048
  13. PETASITES HYBRIDUS [Concomitant]
     Dosage: 2 TIMES DAILY X 4 WKS THEN TWICE DAILY
     Route: 048

REACTIONS (10)
  - AMNESIA [None]
  - ASTHENIA [None]
  - HEADACHE [None]
  - PAIN [None]
  - HYPOAESTHESIA [None]
  - MOBILITY DECREASED [None]
  - ANXIETY [None]
  - CEREBRAL ARTERY OCCLUSION [None]
  - DEPRESSION [None]
  - FATIGUE [None]
